FAERS Safety Report 11584891 (Version 4)
Quarter: 2016Q1

REPORT INFORMATION
  Report Type: Spontaneous
  Country: JP (occurrence: JP)
  Receive Date: 20151001
  Receipt Date: 20160222
  Transmission Date: 20160525
  Serious: Yes (Death, Hospitalization)
  Sender: FDA-Public Use
  Company Number: PHJP2015JP016326

PATIENT
  Age: 64 Year
  Sex: Female

DRUGS (3)
  1. LENADEX [Suspect]
     Active Substance: DEXAMETHASONE ACETATE
     Indication: PLASMA CELL MYELOMA
     Dosage: 20 MG, UNK
     Route: 048
     Dates: start: 20150904, end: 201510
  2. VELCADE [Suspect]
     Active Substance: BORTEZOMIB
     Indication: PLASMA CELL MYELOMA
     Dosage: 1.3 MG/M2, UNK
     Route: 058
     Dates: start: 20150904, end: 201510
  3. FARYDAK [Suspect]
     Active Substance: PANOBINOSTAT
     Indication: PLASMA CELL MYELOMA
     Dosage: 20 MG, QW3
     Route: 048
     Dates: start: 20150904, end: 20151005

REACTIONS (8)
  - Plasma cell myeloma [Fatal]
  - Cardiac failure acute [Recovered/Resolved]
  - Tumour lysis syndrome [Unknown]
  - Cardiac failure acute [Recovered/Resolved]
  - Malignant neoplasm progression [Fatal]
  - Dyspnoea [Unknown]
  - Palpitations [Unknown]
  - Somnolence [Not Recovered/Not Resolved]

NARRATIVE: CASE EVENT DATE: 20150912
